FAERS Safety Report 9076061 (Version 1)
Quarter: 2013Q1

REPORT INFORMATION
  Report Type: Spontaneous
  Country: BR (occurrence: BR)
  Receive Date: 20130129
  Receipt Date: 20130129
  Transmission Date: 20140127
  Serious: Yes (Other)
  Sender: FDA-Public Use
  Company Number: BR-AMGEN-BRASP2013005854

PATIENT
  Age: 49 Year
  Sex: Female
  Weight: 72 kg

DRUGS (3)
  1. ENBREL [Suspect]
     Indication: RHEUMATOID ARTHRITIS
     Dosage: 25 MG, 2X/WEEK
     Route: 058
     Dates: start: 201102, end: 201209
  2. ENBREL [Suspect]
     Dosage: 50 MG, QWK
  3. PRELONE                            /00016201/ [Concomitant]
     Dosage: UNK

REACTIONS (1)
  - Drug-induced liver injury [Unknown]
